FAERS Safety Report 7918501-8 (Version None)
Quarter: 2011Q4

REPORT INFORMATION
  Report Type: 
  Country: None (occurrence: None)
  Receive Date: 20111116
  Receipt Date: 20111013
  Transmission Date: 20120403
  Serious: No
  Sender: FDA-Public Use
  Company Number: US-TYCO HEALTHCARE/MALLINCKRODT-T201101475

PATIENT
  Sex: Female

DRUGS (2)
  1. FENTANYL [Concomitant]
     Dosage: 75 UG/HR,
     Dates: end: 20110716
  2. FENTANYL-100 [Suspect]
     Indication: PAIN
     Dosage: 75 UG/HR, EVERY 3 DAYS
     Route: 062
     Dates: start: 20110716

REACTIONS (2)
  - SENSATION OF FOREIGN BODY [None]
  - WITHDRAWAL SYNDROME [None]
